FAERS Safety Report 7103729-X (Version None)
Quarter: 2010Q4

REPORT INFORMATION
  Report Type: 
  Country: None (occurrence: None)
  Receive Date: 20101115
  Receipt Date: 20101105
  Transmission Date: 20110411
  Serious: Yes (Other)
  Sender: FDA-Public Use
  Company Number: BE-WATSON-2010-14646

PATIENT
  Age: 26 Year
  Sex: Female

DRUGS (6)
  1. RISPERDONE [Suspect]
     Indication: SCHIZOPHRENIA
     Dosage: UNK
  2. HALOPERIDOL [Suspect]
     Indication: SCHIZOPHRENIA
     Dosage: UNK
  3. BROMPERIDOL [Suspect]
     Indication: SCHIZOPHRENIA
     Dosage: UNK
  4. ARIPIPRAZOLE [Suspect]
     Indication: SCHIZOPHRENIA
     Dosage: UNK
  5. OLANZAPINE [Suspect]
     Indication: SCHIZOPHRENIA
     Dosage: UNK
  6. SERTINDOLE [Suspect]
     Indication: SCHIZOPHRENIA
     Dosage: UNK

REACTIONS (1)
  - NEUTROPENIA [None]
